FAERS Safety Report 23717715 (Version 1)
Quarter: 2024Q2

REPORT INFORMATION
  Report Type: Spontaneous
  Country: CA (occurrence: None)
  Receive Date: 20240405
  Receipt Date: 20240405
  Transmission Date: 20240715
  Serious: No
  Sender: FDA-Public Use
  Company Number: None

PATIENT
  Age: 0 Year
  Sex: Female
  Weight: 60.75 kg

DRUGS (2)
  1. ETHINYL ESTRADIOL\NORELGESTROMIN [Suspect]
     Active Substance: ETHINYL ESTRADIOL\NORELGESTROMIN
     Indication: Dysmenorrhoea
     Dosage: OTHER QUANTITY : 1 PATCH(ES)?OTHER FREQUENCY : 1 A WEEK?
     Route: 061
  2. Evra birth control patch [Concomitant]

REACTIONS (3)
  - Application site pain [None]
  - Application site pruritus [None]
  - Application site urticaria [None]

NARRATIVE: CASE EVENT DATE: 20080722
